FAERS Safety Report 4709429-5 (Version None)
Quarter: 2005Q3

REPORT INFORMATION
  Report Type: 
  Country: None (occurrence: None)
  Receive Date: 20050707
  Receipt Date: 20050707
  Transmission Date: 20060218
  Serious: Yes (Hospitalization)
  Sender: FDA-Public Use
  Company Number: None

PATIENT
  Age: 44 Year
  Sex: Female
  Weight: 62.8 kg

DRUGS (8)
  1. METHADONE [Suspect]
     Indication: PAIN
     Dosage: 10 MG TID PRN PO
     Route: 048
     Dates: start: 20050614, end: 20050617
  2. OMEPRAZOLE [Concomitant]
  3. PANCRELIPASE [Concomitant]
  4. OXCARBAZEPINE [Concomitant]
  5. RANITIDINE HCL [Concomitant]
  6. IBUPROFEN [Concomitant]
  7. CLONAZEPAM [Concomitant]
  8. SUMATRIPTAN SUCC [Concomitant]

REACTIONS (2)
  - NAUSEA [None]
  - VOMITING [None]
